FAERS Safety Report 11464298 (Version 1)
Quarter: 2015Q3

REPORT INFORMATION
  Report Type: Spontaneous
  Country: US (occurrence: US)
  Receive Date: 20150831
  Receipt Date: 20150831
  Transmission Date: 20151125
  Serious: No
  Sender: FDA-Public Use
  Company Number: US-ELI_LILLY_AND_COMPANY-US201107003951

PATIENT
  Age: 45 Year
  Sex: Female

DRUGS (4)
  1. CYMBALTA [Suspect]
     Active Substance: DULOXETINE HYDROCHLORIDE
     Dosage: UNK, UNKNOWN
  2. AMITRIPTYLINE [Concomitant]
     Active Substance: AMITRIPTYLINE
  3. CYMBALTA [Suspect]
     Active Substance: DULOXETINE HYDROCHLORIDE
     Dosage: 120 MG, UNKNOWN
     Dates: start: 20070806
  4. FLEXERIL [Concomitant]
     Active Substance: CYCLOBENZAPRINE HYDROCHLORIDE

REACTIONS (2)
  - Speech disorder [Unknown]
  - Facial spasm [Unknown]
